FAERS Safety Report 8956344 (Version 1)
Quarter: 2012Q4

REPORT INFORMATION
  Report Type: Report from Study
  Country: GB (occurrence: GB)
  Receive Date: 20121210
  Receipt Date: 20121210
  Transmission Date: 20130627
  Serious: Yes (Hospitalization)
  Sender: FDA-Public Use
  Company Number: GB-PFIZER INC-2012305731

PATIENT
  Age: 46 Year
  Sex: Female
  Weight: 65 kg

DRUGS (18)
  1. GENOTROPIN [Suspect]
     Dosage: 0.2 mg, 1x/day, 7 injections/week
     Route: 058
     Dates: start: 20020214
  2. HYDROCORTISONE [Concomitant]
     Indication: ACTH DECREASED
     Dosage: UNK
     Dates: start: 19900801
  3. LEVOTHYROXINE [Concomitant]
     Indication: TSH DECREASED
     Dosage: UNK
     Dates: start: 19910401
  4. LEVOTHYROXINE [Concomitant]
     Indication: PRIMARY HYPOTHYROIDISM
  5. BROMOCRIPTINE [Concomitant]
     Indication: PROLACTINOMA
     Dosage: UNK
     Dates: start: 19910401
  6. ESTRADERM [Concomitant]
     Indication: LUTEINISING HORMONE DEFICIENCY
     Dosage: UNK
     Dates: start: 19910601
  7. ESTRADERM [Concomitant]
     Indication: FOLLICLE-STIMULATING HORMONE DEFICIENCY
  8. ESTRADERM [Concomitant]
     Indication: OVARIAN DISORDER
  9. ESTRADERM [Concomitant]
     Indication: HYPOGONADISM
  10. MEDROXYPROGESTERONE [Concomitant]
     Indication: LUTEINISING HORMONE DEFICIENCY
     Dosage: UNK
     Dates: start: 19910601
  11. MEDROXYPROGESTERONE [Concomitant]
     Indication: FOLLICLE-STIMULATING HORMONE DEFICIENCY
  12. MEDROXYPROGESTERONE [Concomitant]
     Indication: HYPOGONADISM
  13. MEDROXYPROGESTERONE [Concomitant]
     Indication: OVARIAN DISORDER
  14. VITAMIN B6 [Concomitant]
     Indication: PRE-MENSTRUAL TENSION SYNDROME
     Dosage: UNK
     Dates: start: 19960101
  15. AMOXICILLIN [Concomitant]
     Indication: COMMON COLD
     Dosage: UNK
     Dates: start: 19970801
  16. SALBUTAMOL [Concomitant]
     Indication: INHALATION THERAPY
     Dosage: UNK
     Dates: start: 19970801
  17. FERROUS SULPHATE [Concomitant]
     Indication: ANAEMIA
     Dosage: UNK
     Dates: start: 19980917
  18. KELP [Concomitant]
     Indication: HAIR LOSS
     Dosage: UNK
     Dates: start: 19991201

REACTIONS (1)
  - ACTH stimulation test [Unknown]
